FAERS Safety Report 11693764 (Version 1)
Quarter: 2015Q4

REPORT INFORMATION
  Report Type: Spontaneous
  Country: US (occurrence: US)
  Receive Date: 20151103
  Receipt Date: 20151103
  Transmission Date: 20160304
  Serious: No
  Sender: FDA-Public Use
  Company Number: US-ACTELION PHARMACEUTICALS US, INC.-A-US2015-126532

PATIENT
  Age: 58 Year
  Sex: Female

DRUGS (11)
  1. LOSARTAN. [Concomitant]
     Active Substance: LOSARTAN
  2. COUMADIN [Concomitant]
     Active Substance: WARFARIN SODIUM
  3. ENBREL [Concomitant]
     Active Substance: ETANERCEPT
  4. PREDNISONE. [Concomitant]
     Active Substance: PREDNISONE
  5. ADVIL [Concomitant]
     Active Substance: IBUPROFEN
  6. DULERA [Concomitant]
     Active Substance: FORMOTEROL FUMARATE DIHYDRATE\MOMETASONE FUROATE
  7. TREPROSTINIL DIOLAMIN [Suspect]
     Active Substance: TREPROSTINIL DIOLAMINE
     Indication: PRODUCT USED FOR UNKNOWN INDICATION
     Route: 065
  8. CLARITIN [Concomitant]
     Active Substance: LORATADINE
  9. ALEVE [Concomitant]
     Active Substance: NAPROXEN SODIUM
  10. OPSUMIT [Suspect]
     Active Substance: MACITENTAN
     Indication: PULMONARY ARTERIAL HYPERTENSION
     Dosage: UNK
     Route: 048
     Dates: start: 20140924
  11. LASIX [Concomitant]
     Active Substance: FUROSEMIDE

REACTIONS (2)
  - Nausea [Unknown]
  - Duodenogastric reflux [Unknown]

NARRATIVE: CASE EVENT DATE: 20150218
